FAERS Safety Report 7962838-3 (Version None)
Quarter: 2011Q4

REPORT INFORMATION
  Report Type: 
  Country: None (occurrence: None)
  Receive Date: 20111207
  Receipt Date: 20111201
  Transmission Date: 20120403
  Serious: Yes (Other)
  Sender: FDA-Public Use
  Company Number: DE-PFIZER INC-2011064359

PATIENT
  Age: 79 Year
  Sex: Female

DRUGS (6)
  1. MARCUMAR [Suspect]
     Dosage: 3 MG ONCE DAILY IN EVENING
  2. FUROSEMIDE [Concomitant]
     Dosage: 40 MG, UNK
  3. RAMIPRIL [Suspect]
     Dosage: 2.5 MG, 2X/DAY
     Route: 048
     Dates: start: 20090101
  4. MAGNESIUM HYDROGEN ASPARTATE [Concomitant]
     Dosage: UNK
  5. OMEGA-3 MARINE TRIGLYCERIDES [Concomitant]
     Dosage: UNK
  6. CRATAEGUS LAEVIGATA [Concomitant]
     Dosage: UNK

REACTIONS (5)
  - SENSATION OF HEAVINESS [None]
  - PARALYSIS [None]
  - HYPOAESTHESIA [None]
  - ALOPECIA [None]
  - FATIGUE [None]
